FAERS Safety Report 20756293 (Version 1)
Quarter: 2022Q2

REPORT INFORMATION
  Report Type: Spontaneous
  Country: US (occurrence: US)
  Receive Date: 20220427
  Receipt Date: 20220427
  Transmission Date: 20220720
  Serious: No
  Sender: FDA-Public Use
  Company Number: US-AIMMUNE THERAPEUTICS, INC.-2022AIMT00330

PATIENT

DRUGS (4)
  1. PALFORZIA [Interacting]
     Active Substance: PEANUT
     Indication: Food allergy
     Dosage: IDE (0.5MG-3MG)
     Route: 048
     Dates: start: 20220221, end: 20220221
  2. ZYRTEC [Concomitant]
     Active Substance: CETIRIZINE HYDROCHLORIDE
     Indication: Hypersensitivity
     Dosage: 10 ML, 1X/DAY AS NEEDED
     Dates: start: 20210419
  3. BENADRYL [Concomitant]
     Active Substance: DIPHENHYDRAMINE HYDROCHLORIDE
     Indication: Hypersensitivity
     Dosage: 25 MG, 4X/DAY AS NEEDED
     Dates: start: 20210419
  4. FLONASE [Concomitant]
     Active Substance: FLUTICASONE PROPIONATE
     Indication: Seasonal allergy

REACTIONS (3)
  - Drug titration error [Recovered/Resolved]
  - Oral pruritus [Not Recovered/Not Resolved]
  - Abdominal pain [Recovering/Resolving]

NARRATIVE: CASE EVENT DATE: 20220221
